FAERS Safety Report 23258941 (Version 1)
Quarter: 2023Q4

REPORT INFORMATION
  Report Type: Spontaneous
  Country: US (occurrence: None)
  Receive Date: 20231202
  Receipt Date: 20231202
  Transmission Date: 20240110
  Serious: Yes (Hospitalization)
  Sender: FDA-Public Use
  Company Number: None

PATIENT
  Age: 70 Year
  Sex: Male
  Weight: 99 kg

DRUGS (1)
  1. SULFAMETHOXAZOLE AND TRIMETHOPRIM [Suspect]
     Active Substance: SULFAMETHOXAZOLE\TRIMETHOPRIM
     Indication: Osteomyelitis
     Dosage: OTHER QUANTITY : 800/160 MG;?FREQUENCY : TWICE A DAY;?
     Route: 048
     Dates: start: 20230814, end: 20230819

REACTIONS (3)
  - Acute kidney injury [None]
  - Glomerular filtration rate decreased [None]
  - Blood potassium increased [None]

NARRATIVE: CASE EVENT DATE: 20230819
